FAERS Safety Report 6725466-3 (Version None)
Quarter: 2010Q2

REPORT INFORMATION
  Report Type: 
  Country: None (occurrence: None)
  Receive Date: 20100514
  Receipt Date: 20100507
  Transmission Date: 20101027
  Serious: Yes (Death, Hospitalization, Other)
  Sender: FDA-Public Use
  Company Number: SE-CELGENEUS-150-21880-10050775

PATIENT
  Sex: Female

DRUGS (7)
  1. REVLIMID [Suspect]
     Indication: MULTIPLE MYELOMA
     Route: 048
     Dates: start: 20091201
  2. VELCADE [Suspect]
     Indication: MULTIPLE MYELOMA
     Route: 065
  3. CIPROFLOXACIN [Suspect]
     Indication: LUNG CONSOLIDATION
     Route: 065
  4. SELOKEN ZOC [Concomitant]
     Indication: DRUG USE FOR UNKNOWN INDICATION
     Route: 065
  5. OLICLINOMEL [Concomitant]
     Indication: DRUG USE FOR UNKNOWN INDICATION
     Route: 065
  6. BETAPRED [Concomitant]
     Indication: MULTIPLE MYELOMA
     Route: 065
  7. SODIUM CARBONATE [Concomitant]
     Indication: DRUG USE FOR UNKNOWN INDICATION
     Route: 065

REACTIONS (10)
  - ABDOMINAL PAIN [None]
  - DEATH [None]
  - DISEASE PROGRESSION [None]
  - GENERAL PHYSICAL HEALTH DETERIORATION [None]
  - LUNG CONSOLIDATION [None]
  - NEUTROPENIC SEPSIS [None]
  - ORAL FUNGAL INFECTION [None]
  - PANCREATITIS [None]
  - PANCYTOPENIA [None]
  - RENAL FAILURE ACUTE [None]
